FAERS Safety Report 11652985 (Version 1)
Quarter: 2015Q4

REPORT INFORMATION
  Report Type: Spontaneous
  Country: FR (occurrence: FR)
  Receive Date: 20151022
  Receipt Date: 20151022
  Transmission Date: 20160304
  Serious: Yes (Hospitalization, Other)
  Sender: FDA-Public Use
  Company Number: FR-PFIZER INC-2015355256

PATIENT
  Age: 78 Year
  Sex: Male

DRUGS (9)
  1. VITAMIN D [Concomitant]
     Active Substance: CHOLECALCIFEROL
     Dosage: UNK
     Dates: start: 20150603
  2. REVLIMID [Suspect]
     Active Substance: LENALIDOMIDE
     Indication: PLASMA CELL MYELOMA
     Dosage: 20 MG, 1X/DAY
     Route: 048
     Dates: start: 20150603, end: 20150608
  3. ARANESP [Concomitant]
     Active Substance: DARBEPOETIN ALFA
  4. ALPRESS [Concomitant]
     Active Substance: PRAZOSIN
  5. VALACICLOVIR [Concomitant]
     Active Substance: VALACYCLOVIR HYDROCHLORIDE
  6. MEDROL [Suspect]
     Active Substance: METHYLPREDNISOLONE
     Indication: PLASMA CELL MYELOMA
     Dosage: 100 MG, WEEKLY
     Route: 048
     Dates: start: 20150603, end: 20150608
  7. PREVISCAN /00789001/ [Concomitant]
     Active Substance: FLUINDIONE
  8. FOZIRETIC [Concomitant]
     Active Substance: FOSINOPRIL SODIUM\HYDROCHLOROTHIAZIDE
  9. SOTALOL. [Concomitant]
     Active Substance: SOTALOL

REACTIONS (5)
  - Acute kidney injury [Recovered/Resolved]
  - Leukopenia [Not Recovered/Not Resolved]
  - Plasma cell myeloma [Recovered/Resolved]
  - Condition aggravated [Recovered/Resolved]
  - Thrombocytopenia [Recovered/Resolved]

NARRATIVE: CASE EVENT DATE: 20150608
